FAERS Safety Report 20106006 (Version 1)
Quarter: 2021Q4

REPORT INFORMATION
  Report Type: Spontaneous
  Country: FR (occurrence: FR)
  Receive Date: 20211124
  Receipt Date: 20211124
  Transmission Date: 20220303
  Serious: Yes (Hospitalization)
  Sender: FDA-Public Use
  Company Number: None

PATIENT
  Age: 49 Year
  Sex: Male
  Weight: 124 kg

DRUGS (6)
  1. PENICILLIN V POTASSIUM [Suspect]
     Active Substance: PENICILLIN V POTASSIUM
     Indication: Antibiotic therapy
     Dosage: 2 DF, QD
     Route: 048
     Dates: start: 20210924, end: 20211028
  2. RACECADOTRIL [Suspect]
     Active Substance: RACECADOTRIL
     Indication: Prophylaxis
     Dosage: 3 DF, QD
     Route: 048
     Dates: start: 20211005, end: 20211020
  3. ATOVAQUONE [Suspect]
     Active Substance: ATOVAQUONE
     Indication: Antifungal treatment
     Dosage: 1500 MG, QD
     Route: 048
     Dates: start: 20210927, end: 20211024
  4. VALACYCLOVIR HYDROCHLORIDE [Suspect]
     Active Substance: VALACYCLOVIR HYDROCHLORIDE
     Indication: Antiviral treatment
     Dosage: 500 MG, QD
     Route: 048
     Dates: start: 20211014, end: 20211027
  5. PIPERACILLIN SODIUM\TAZOBACTAM SODIUM [Suspect]
     Active Substance: PIPERACILLIN SODIUM\TAZOBACTAM SODIUM
     Indication: Antibiotic therapy
     Dosage: 3 DF, QD
     Route: 048
     Dates: start: 20211005, end: 20211020
  6. PANTOPRAZOLE [Suspect]
     Active Substance: PANTOPRAZOLE
     Indication: Prophylaxis
     Dosage: 40 MG, QD
     Route: 048
     Dates: start: 20211014, end: 20211027

REACTIONS (2)
  - Rash maculo-papular [Recovering/Resolving]
  - Eosinophilia [Recovered/Resolved]

NARRATIVE: CASE EVENT DATE: 20211023
